FAERS Safety Report 4570683-4 (Version None)
Quarter: 2005Q1

REPORT INFORMATION
  Report Type: 
  Country: None (occurrence: None)
  Receive Date: 20050204
  Receipt Date: 20041202
  Transmission Date: 20050727
  Serious: Yes (Other)
  Sender: FDA-Public Use
  Company Number: US-BRISTOL-MYERS SQUIBB COMPANY-12782587

PATIENT
  Age: 85 Year
  Sex: Male
  Weight: 63 kg

DRUGS (10)
  1. ERBITUX [Suspect]
     Indication: NEOPLASM MALIGNANT
     Dosage: 1ST DOSE
     Route: 042
     Dates: start: 20041201, end: 20041201
  2. TAXOTERE [Concomitant]
     Dosage: REC'D ABOUT 15 MINS. PRIOR TO CETUXIMAB
     Dates: start: 20041201, end: 20041201
  3. ALOXI [Concomitant]
     Indication: PREMEDICATION
     Route: 042
     Dates: start: 20041201, end: 20041201
  4. DECADRON [Concomitant]
     Indication: PREMEDICATION
     Route: 042
     Dates: start: 20041201, end: 20041201
  5. BENADRYL [Concomitant]
     Indication: PREMEDICATION
     Route: 042
     Dates: start: 20041201, end: 20041201
  6. ENALAPRIL MALEATE [Concomitant]
  7. ALPRAZOLAM [Concomitant]
  8. AMIODARONE HCL [Concomitant]
  9. ASPIRIN [Concomitant]
  10. ERYTHROMYCIN [Concomitant]

REACTIONS (4)
  - HYPOTENSION [None]
  - MICTURITION URGENCY [None]
  - OXYGEN SATURATION DECREASED [None]
  - TACHYCARDIA [None]
